FAERS Safety Report 15868020 (Version 1)
Quarter: 2019Q1

REPORT INFORMATION
  Report Type: Spontaneous
  Country: ES (occurrence: ES)
  Receive Date: 20190125
  Receipt Date: 20190125
  Transmission Date: 20190417
  Serious: Yes (Hospitalization)
  Sender: FDA-Public Use
  Company Number: ES-LINDE-ES-LHC-2019013

PATIENT
  Age: 15 Year
  Sex: Female

DRUGS (1)
  1. CONOXIA [Suspect]
     Active Substance: OXYGEN
     Indication: PRODUCT USED FOR UNKNOWN INDICATION
     Route: 055
     Dates: start: 20190114

REACTIONS (3)
  - Device malfunction [Unknown]
  - Accidental underdose [Unknown]
  - Oxygen saturation decreased [Unknown]

NARRATIVE: CASE EVENT DATE: 20190114
